FAERS Safety Report 5694071-2 (Version None)
Quarter: 2008Q1

REPORT INFORMATION
  Report Type: 
  Country: None (occurrence: None)
  Receive Date: 20080320
  Receipt Date: 20080307
  Transmission Date: 20080703
  Serious: Yes (Other)
  Sender: FDA-Public Use
  Company Number: AEUSA200800052

PATIENT
  Age: 75 Year
  Sex: Female

DRUGS (1)
  1. IMMUNE GLOBULIN INTRAVENOUS (HUMAN) [Suspect]
     Indication: LICHEN MYXOEDEMATOSUS
     Dosage: 2 G/KG; TOTAL; IV
     Route: 042

REACTIONS (1)
  - RENAL FAILURE [None]
